FAERS Safety Report 10049026 (Version 2)
Quarter: 2014Q1

REPORT INFORMATION
  Report Type: Spontaneous
  Country: US (occurrence: US)
  Receive Date: 20140331
  Receipt Date: 20140331
  Transmission Date: 20141002
  Serious: Yes (Other)
  Sender: FDA-Public Use
  Company Number: US-RB-063341-14

PATIENT
  Age: 52 Year
  Sex: Female

DRUGS (7)
  1. SUBOXONE TABLET [Suspect]
     Indication: DRUG DEPENDENCE
     Route: 060
     Dates: start: 2008, end: 201009
  2. SUBOXONE TABLET [Suspect]
     Route: 060
     Dates: start: 201009, end: 2013
  3. SUBOXONE FILM [Suspect]
     Indication: DRUG DEPENDENCE
     Dosage: SUBOXONE FILM
     Route: 060
     Dates: start: 201009, end: 201009
  4. SUBOXONE FILM [Suspect]
     Dosage: SUBOXONE FILM
     Route: 060
     Dates: start: 201401, end: 201402
  5. BUPRENORPHINE GENERIC [Suspect]
     Indication: DRUG DEPENDENCE
     Route: 060
     Dates: start: 2013, end: 201401
  6. BUPRENORPHINE GENERIC [Suspect]
     Route: 060
     Dates: start: 201402
  7. ATORVASTATIN [Concomitant]
     Indication: BLOOD CHOLESTEROL INCREASED
     Route: 048
     Dates: start: 2005

REACTIONS (10)
  - Therapeutic response unexpected [Not Recovered/Not Resolved]
  - Depression [Not Recovered/Not Resolved]
  - Throat tightness [Recovered/Resolved]
  - Oesophageal polyp [Recovered/Resolved]
  - Asthma [Recovered/Resolved]
  - Dyspnoea [Recovered/Resolved]
  - Substance abuse [Recovered/Resolved]
  - Wrong technique in drug usage process [Recovered/Resolved]
  - Tongue injury [Recovering/Resolving]
  - Wound [Recovering/Resolving]
